APPROVED DRUG PRODUCT: TRADJENTA
Active Ingredient: LINAGLIPTIN
Strength: 5MG
Dosage Form/Route: TABLET;ORAL
Application: N201280 | Product #001 | TE Code: AB
Applicant: BOEHRINGER INGELHEIM PHARMACEUTICALS INC
Approved: May 2, 2011 | RLD: Yes | RS: Yes | Type: RX

PATENTS:
Patent 8853156 | Expires: Mar 5, 2031
Patent 8673927 | Expires: May 4, 2027
Patent 8846695 | Expires: Jun 4, 2030
Patent 9486526 | Expires: Aug 5, 2029
Patent 12364700 | Expires: Jun 8, 2037
Patent 11911388 | Expires: Apr 10, 2030
Patent 10034877 | Expires: Aug 5, 2029
Patent 12178819 | Expires: May 4, 2027
Patent 11033552 | Expires: May 4, 2027
Patent 8883805 | Expires: Nov 26, 2025
Patent 8846695*PED | Expires: Dec 4, 2030
Patent 8883805*PED | Expires: May 26, 2026
Patent 8673927*PED | Expires: Nov 4, 2027
Patent 8853156*PED | Expires: Sep 5, 2031
Patent 10034877*PED | Expires: Feb 5, 2030
Patent 9486526*PED | Expires: Feb 5, 2030
Patent 11033552*PED | Expires: Nov 4, 2027
Patent 12364700*PED | Expires: Dec 8, 2037

EXCLUSIVITY:
Code: PED | Date: Dec 20, 2026
Code: M-295 | Date: Jun 20, 2026